FAERS Safety Report 19908143 (Version 2)
Quarter: 2021Q4

REPORT INFORMATION
  Report Type: Report from Study
  Country: SI (occurrence: SI)
  Receive Date: 20211001
  Receipt Date: 20211004
  Transmission Date: 20220303
  Serious: Yes (Other)
  Sender: FDA-Public Use
  Company Number: SI-AMGEN-SVNNI2021136276

PATIENT
  Age: 70 Year
  Sex: Male

DRUGS (15)
  1. ATORVASTATIN CALCIUM [Suspect]
     Active Substance: ATORVASTATIN CALCIUM
     Dosage: 20 MG, 1X/DAY
     Route: 048
     Dates: end: 20210822
  2. SOTORASIB [Suspect]
     Active Substance: SOTORASIB
     Indication: Non-small cell lung cancer
     Dosage: 480 MG, 1X/DAY
  3. SOTORASIB [Suspect]
     Active Substance: SOTORASIB
     Indication: K-ras gene mutation
     Dosage: 960 MG, 1X/DAY
     Route: 048
     Dates: start: 20210804, end: 20210822
  4. SOTORASIB [Suspect]
     Active Substance: SOTORASIB
     Dosage: 480 MG, 1X/DAY
     Route: 048
     Dates: start: 20210825, end: 20210831
  5. SOTORASIB [Suspect]
     Active Substance: SOTORASIB
     Dosage: 960 MG, 1X/DAY
     Route: 048
     Dates: start: 20210901, end: 20210908
  6. SOTORASIB [Suspect]
     Active Substance: SOTORASIB
     Dosage: UNK
     Route: 048
     Dates: start: 20210909
  7. DENOSUMAB [Suspect]
     Active Substance: DENOSUMAB
     Indication: Metastasis
     Dosage: 120 MG, MONTHLY
     Route: 058
     Dates: start: 20210818, end: 20210818
  8. VIT D [COLECALCIFEROL] [Concomitant]
     Dosage: UNK, WEEKLY (7000 IE)
     Route: 048
     Dates: start: 20210818
  9. CALCIUM CARBONATE [Concomitant]
     Active Substance: CALCIUM CARBONATE
     Dosage: 1 G, 1X/DAY
     Route: 048
     Dates: start: 20210818
  10. ASPIRIN [Concomitant]
     Active Substance: ASPIRIN
     Dosage: 100 MG, 1X/DAY
     Route: 048
  11. BISOPROLOL [Concomitant]
     Active Substance: BISOPROLOL
     Dosage: 2.5 MG, 2X/DAY
     Route: 048
  12. TRIMETAZIDINE [Concomitant]
     Active Substance: TRIMETAZIDINE
     Dosage: 35 MG, 2X/DAY
     Route: 048
  13. IBUPROFEN [Concomitant]
     Active Substance: IBUPROFEN
     Dosage: 800 MG, 3X/DAY
     Route: 048
     Dates: start: 20210818
  14. PERINDOPRIL [Concomitant]
     Active Substance: PERINDOPRIL
     Dosage: 4 MG, 1X/DAY
     Route: 048
  15. ACETAMINOPHEN\TRAMADOL [Concomitant]
     Active Substance: ACETAMINOPHEN\TRAMADOL
     Dosage: UNK, 3X/DAY (37.5/325 MG)
     Route: 048
     Dates: start: 20210804

REACTIONS (2)
  - Metastases to bone [Unknown]
  - Musculoskeletal pain [Not Recovered/Not Resolved]

NARRATIVE: CASE EVENT DATE: 20210823
